FAERS Safety Report 13399955 (Version 1)
Quarter: 2017Q2

REPORT INFORMATION
  Report Type: Spontaneous
  Country: US (occurrence: US)
  Receive Date: 20170404
  Receipt Date: 20170404
  Transmission Date: 20170830
  Serious: Yes (Other)
  Sender: FDA-Public Use
  Company Number: None

PATIENT
  Age: 71 Year
  Sex: Female
  Weight: 41.85 kg

DRUGS (8)
  1. TRAVATAN [Concomitant]
     Active Substance: TRAVOPROST
  2. ATENOLOL. [Concomitant]
     Active Substance: ATENOLOL
  3. VITAMINS [Concomitant]
     Active Substance: VITAMINS
  4. FLECAINIDE [Concomitant]
     Active Substance: FLECAINIDE
  5. SIMBRINZA [Concomitant]
     Active Substance: BRIMONIDINE TARTRATE\BRINZOLAMIDE
  6. AMOXICILLIN. [Suspect]
     Active Substance: AMOXICILLIN
     Indication: LYMPH GLAND INFECTION
     Dosage: ?          QUANTITY:20 TABLET(S);?
     Route: 048
     Dates: start: 20160509, end: 20160511
  7. RALOXIFENE. [Concomitant]
     Active Substance: RALOXIFENE
  8. PRAMIPEXOLE. [Concomitant]
     Active Substance: PRAMIPEXOLE

REACTIONS (1)
  - Dyschromatopsia [None]

NARRATIVE: CASE EVENT DATE: 20160511
